FAERS Safety Report 19935988 (Version 1)
Quarter: 2021Q4

REPORT INFORMATION
  Report Type: Spontaneous
  Country: US (occurrence: US)
  Receive Date: 20211008
  Receipt Date: 20211008
  Transmission Date: 20220303
  Serious: No
  Sender: FDA-Public Use
  Company Number: US-BOEHRINGERINGELHEIM-2021-BI-131657

PATIENT
  Sex: Female

DRUGS (1)
  1. MIRAPEX [Suspect]
     Active Substance: PRAMIPEXOLE DIHYDROCHLORIDE
     Indication: Restless legs syndrome
     Dosage: 0.125MG; 1 TABLET BEFORE BEDTIME FOR RLS
     Dates: start: 2004

REACTIONS (5)
  - Palpitations [Unknown]
  - Anxiety [Unknown]
  - Tremor [Unknown]
  - Migraine [Not Recovered/Not Resolved]
  - Obsessive-compulsive disorder [Unknown]

NARRATIVE: CASE EVENT DATE: 20040101
